FAERS Safety Report 9434897 (Version 1)
Quarter: 2013Q3

REPORT INFORMATION
  Report Type: Spontaneous
  Country: DE (occurrence: None)
  Receive Date: 20130730
  Receipt Date: 20130730
  Transmission Date: 20140515
  Serious: Yes (Hospitalization)
  Sender: FDA-Public Use
  Company Number: 149738

PATIENT
  Age: 32 Year
  Sex: Male

DRUGS (1)
  1. LORAZEPAM [Suspect]

REACTIONS (3)
  - Overdose [None]
  - Bezoar [None]
  - Continuous haemodiafiltration [None]
